FAERS Safety Report 5297213-6 (Version None)
Quarter: 2007Q2

REPORT INFORMATION
  Report Type: 
  Country: None (occurrence: None)
  Receive Date: 20070416
  Receipt Date: 20070410
  Transmission Date: 20071010
  Serious: Yes (Death)
  Sender: FDA-Public Use
  Company Number: NO-SHR-NO-2007-009546

PATIENT
  Age: 63 Year
  Sex: Male

DRUGS (1)
  1. MAGNEVIST [Suspect]
     Dosage: POSSIBLY 7 MR EXAMINATIONS TOTAL
     Dates: start: 20020702, end: 20050107

REACTIONS (1)
  - NEPHROGENIC FIBROSING DERMOPATHY [None]
